FAERS Safety Report 17305829 (Version 1)
Quarter: 2020Q1

REPORT INFORMATION
  Report Type: Spontaneous
  Country: US (occurrence: US)
  Receive Date: 20200106
  Receipt Date: 20200106
  Transmission Date: 20200409
  Serious: No
  Sender: FDA-Public Use
  Company Number: None

PATIENT
  Sex: Female

DRUGS (1)
  1. STIVARGA [Suspect]
     Active Substance: REGORAFENIB
     Indication: COLON CANCER
     Route: 048
     Dates: start: 20191129

REACTIONS (5)
  - Palmar-plantar erythrodysaesthesia syndrome [None]
  - Vomiting [None]
  - Diarrhoea [None]
  - Abdominal pain [None]
  - Nausea [None]
